FAERS Safety Report 8966468 (Version 1)
Quarter: 2012Q4

REPORT INFORMATION
  Report Type: 
  Country: US (occurrence: US)
  Receive Date: 20121214
  Receipt Date: 20121214
  Transmission Date: 20130627
  Serious: Yes (Other)
  Sender: FDA-Public Use
  Company Number: US-ASTRAZENECA-2012SE91547

PATIENT
  Age: 73 Year
  Sex: Male

DRUGS (2)
  1. SEROQUEL [Suspect]
     Indication: DEMENTIA ALZHEIMER^S TYPE
     Route: 048
  2. RISPERIDONE [Suspect]
     Indication: DEMENTIA ALZHEIMER^S TYPE
     Route: 048

REACTIONS (5)
  - Urinary retention [Not Recovered/Not Resolved]
  - Urinary tract infection [Unknown]
  - White blood cell count increased [Unknown]
  - Pyrexia [Unknown]
  - Off label use [Unknown]
